FAERS Safety Report 15303001 (Version 1)
Quarter: 2018Q3

REPORT INFORMATION
  Report Type: Spontaneous
  Country: CH (occurrence: CH)
  Receive Date: 20180821
  Receipt Date: 20180821
  Transmission Date: 20181010
  Serious: Yes (Other)
  Sender: FDA-Public Use
  Company Number: PHHY2018CH068751

PATIENT
  Age: 10 Week

DRUGS (6)
  1. SORTIS [Suspect]
     Active Substance: ATORVASTATIN
     Indication: FOETAL EXPOSURE DURING PREGNANCY
     Dosage: MATERNAL DOSE: 40 MILLIGRAM 1 TIME IN DAY
     Route: 064
  2. METFIN [Suspect]
     Active Substance: METFORMIN HYDROCHLORIDE
     Indication: FOETAL EXPOSURE DURING PREGNANCY
     Dosage: MATERNAL DOSE: 1000 MILLIGRAM 3 TIMES IN DAY
     Route: 064
  3. PANADOL [Suspect]
     Active Substance: ACETAMINOPHEN
     Indication: FOETAL EXPOSURE DURING PREGNANCY
     Dosage: MATERNAL DOSE: 665 MILLIGRAM 1 TIME IN AS NECESSARY
     Route: 064
  4. VICTOZA [Suspect]
     Active Substance: LIRAGLUTIDE
     Indication: FOETAL EXPOSURE DURING PREGNANCY
     Dosage: MATERNAL DOSE: 1.8 MILLIGRAM 1 TIMES IN DAY
     Route: 064
  5. MONURIL [Suspect]
     Active Substance: FOSFOMYCIN SODIUM
     Indication: FOETAL EXPOSURE DURING PREGNANCY
     Dosage: MATERNAL DOSE: 1 DOSAGE FORM 1 TIMES IN TOTAL
     Route: 064
  6. LANTUS [Suspect]
     Active Substance: INSULIN GLARGINE
     Indication: FOETAL EXPOSURE DURING PREGNANCY
     Dosage: MATERNAL DOSE: 56 INTERNATIONAL UNIT 1 TIMES IN DAY
     Route: 064

REACTIONS (3)
  - Foetal chromosome abnormality [Recovered/Resolved]
  - Exposure during pregnancy [Recovered/Resolved]
  - Abortion spontaneous [Recovered/Resolved]

NARRATIVE: CASE EVENT DATE: 20180331
